FAERS Safety Report 17061295 (Version 2)
Quarter: 2019Q4

REPORT INFORMATION
  Report Type: Report from Study
  Country: CN (occurrence: CN)
  Receive Date: 20191121
  Receipt Date: 20191202
  Transmission Date: 20200122
  Serious: Yes (Death)
  Sender: FDA-Public Use
  Company Number: CN-PFIZER INC-2019501656

PATIENT
  Age: 56 Year
  Sex: Male
  Weight: 66.8 kg

DRUGS (6)
  1. POTASSIUM CHLORIDE. [Concomitant]
     Active Substance: POTASSIUM CHLORIDE
     Indication: HYPOKALAEMIA
     Dosage: 2 G, 2X/DAY
     Route: 048
     Dates: start: 20191028
  2. CARBOPLATIN. [Suspect]
     Active Substance: CARBOPLATIN
     Indication: NON-SMALL CELL LUNG CANCER METASTATIC
     Dosage: 573 MG, SINGLE
     Route: 041
     Dates: start: 20191030, end: 20191030
  3. VENLAFAXINE HYDROCLORIDE [Concomitant]
     Active Substance: VENLAFAXINE HYDROCHLORIDE
     Indication: DEPRESSION
     Dosage: 25 MG, 1X/DAY
     Route: 048
     Dates: start: 2017
  4. PACLITAXEL. [Suspect]
     Active Substance: PACLITAXEL
     Indication: NON-SMALL CELL LUNG CANCER METASTATIC
     Dosage: 312 MG, SINGLE
     Route: 041
     Dates: start: 20191030, end: 20191030
  5. CLONAZEPAM. [Concomitant]
     Active Substance: CLONAZEPAM
     Indication: DEPRESSION
     Dosage: 0.5 MG, 1X/DAY
     Route: 048
     Dates: start: 2017
  6. BLINDED THERAPY [Suspect]
     Active Substance: INVESTIGATIONAL PRODUCT
     Indication: NON-SMALL CELL LUNG CANCER METASTATIC
     Dosage: AK105/PLACEBO, 200 MG, SINGLE
     Route: 041
     Dates: start: 20191030, end: 20191030

REACTIONS (1)
  - Haemoptysis [Fatal]

NARRATIVE: CASE EVENT DATE: 20191110
